FAERS Safety Report 5975524-6 (Version None)
Quarter: 2008Q4

REPORT INFORMATION
  Report Type: 
  Country: None (occurrence: None)
  Receive Date: 20081202
  Receipt Date: 20080519
  Transmission Date: 20090506
  Serious: No
  Sender: FDA-Public Use
  Company Number: A0728548A

PATIENT
  Age: 71 Year
  Sex: Female

DRUGS (3)
  1. AUGMENTIN '125' [Suspect]
     Indication: EYE INFECTION
     Dosage: 875MG TWICE PER DAY
     Route: 048
     Dates: start: 20080515
  2. SYNTHROID [Concomitant]
  3. ROCALTROL [Concomitant]

REACTIONS (1)
  - ABDOMINAL DISCOMFORT [None]
